FAERS Safety Report 9235775 (Version 2)
Quarter: 2013Q3

REPORT INFORMATION
  Report Type: Report from Study
  Country: BR (occurrence: BR)
  Receive Date: 20130417
  Receipt Date: 20130717
  Transmission Date: 20140515
  Serious: Yes (Other)
  Sender: FDA-Public Use
  Company Number: PHHY2013BR036057

PATIENT
  Age: 45 Year
  Sex: Female
  Weight: 46 kg

DRUGS (4)
  1. ACLASTA [Suspect]
     Indication: OSTEOPENIA
     Dosage: 5 MG, 1 INJECTION
     Route: 042
     Dates: start: 20130307
  2. CALCIUM [Concomitant]
     Indication: OSTEOPENIA
     Dosage: 500 MG, DAILY (1 TABLET)
     Route: 048
  3. OSCAL D                            /00944201/ [Concomitant]
  4. CICLOPRIMOGYNA [Concomitant]

REACTIONS (8)
  - Fear of death [Recovered/Resolved]
  - Paralysis [Recovered/Resolved]
  - Pyrexia [Recovered/Resolved]
  - Hypersensitivity [Recovered/Resolved]
  - Generalised erythema [Recovered/Resolved]
  - Local swelling [Recovered/Resolved]
  - Pain [Recovered/Resolved]
  - Headache [Recovered/Resolved]
